FAERS Safety Report 6692918-4 (Version None)
Quarter: 2010Q2

REPORT INFORMATION
  Report Type: 
  Country: None (occurrence: None)
  Receive Date: 20100422
  Receipt Date: 20100409
  Transmission Date: 20101027
  Serious: Yes (Hospitalization, Other)
  Sender: FDA-Public Use
  Company Number: BR-MEDIMMUNE-MEDI-0011093

PATIENT
  Sex: Female
  Weight: 9 kg

DRUGS (3)
  1. SYNAGIS [Suspect]
     Route: 030
     Dates: start: 20080101
  2. IRON AMINO ACID CHELATE [Concomitant]
     Route: 048
     Dates: start: 20081001
  3. PROPAN [Concomitant]
     Route: 048

REACTIONS (9)
  - DIARRHOEA [None]
  - DYSPNOEA [None]
  - NASAL CONGESTION [None]
  - THROMBOSIS [None]
  - URINARY TRACT INFECTION [None]
  - VIRAL INFECTION [None]
  - VOMITING [None]
  - WEIGHT DECREASED [None]
  - WEIGHT INCREASED [None]
